FAERS Safety Report 24636125 (Version 1)
Quarter: 2024Q4

REPORT INFORMATION
  Report Type: Spontaneous
  Country: MA (occurrence: MA)
  Receive Date: 20241119
  Receipt Date: 20241119
  Transmission Date: 20250115
  Serious: Yes (Other)
  Sender: RANBAXY
  Company Number: MA-SUN PHARMACEUTICAL INDUSTRIES LTD-2024R1-479485

PATIENT
  Age: 34 Year
  Sex: Male

DRUGS (6)
  1. DOXYCYCLINE [Suspect]
     Active Substance: DOXYCYCLINE
     Indication: Ulcerative keratitis
     Dosage: 200 MILLIGRAM, DAILY
     Route: 048
  2. DOXYCYCLINE [Suspect]
     Active Substance: DOXYCYCLINE
     Indication: Lichen planus
  3. PREDNISONE [Suspect]
     Active Substance: PREDNISONE
     Indication: Ulcerative keratitis
     Dosage: UNK (1 MG/KG)
     Route: 048
  4. PREDNISONE [Suspect]
     Active Substance: PREDNISONE
     Indication: Lichen planus
  5. DEXAMETHASONE [Suspect]
     Active Substance: DEXAMETHASONE
     Indication: Ulcerative keratitis
     Dosage: UNK (0.1% FOUR TIMES DAILY)
     Route: 061
  6. DEXAMETHASONE [Suspect]
     Active Substance: DEXAMETHASONE
     Indication: Lichen planus

REACTIONS (1)
  - Corneal defect [Recovering/Resolving]
